FAERS Safety Report 9088185 (Version 1)
Quarter: 2013Q1

REPORT INFORMATION
  Report Type: Report from Study
  Country: US (occurrence: US)
  Receive Date: 20130218
  Receipt Date: 20130218
  Transmission Date: 20140127
  Serious: No
  Sender: FDA-Public Use
  Company Number: US-ABBOTT-12P-163-0991360-00

PATIENT
  Sex: Male
  Weight: 87.17 kg

DRUGS (2)
  1. SIMCOR 500/20 [Suspect]
     Indication: BLOOD CHOLESTEROL INCREASED
     Dosage: 500/20 MG
     Dates: start: 201206
  2. SIMCOR 500/20 [Suspect]
     Indication: VASCULAR CALCIFICATION

REACTIONS (2)
  - Neck pain [Not Recovered/Not Resolved]
  - Erythema [Recovered/Resolved]
